FAERS Safety Report 6099746-1 (Version None)
Quarter: 2009Q1

REPORT INFORMATION
  Report Type: 
  Country: None (occurrence: None)
  Receive Date: 20090303
  Receipt Date: 20090217
  Transmission Date: 20090719
  Serious: Yes (Hospitalization, Other)
  Sender: FDA-Public Use
  Company Number: US-ROCHE-609052

PATIENT
  Age: 68 Year
  Sex: Male

DRUGS (12)
  1. CELLCEPT [Suspect]
     Indication: GLOMERULONEPHRITIS MEMBRANOUS
     Route: 065
  2. COREG [Concomitant]
  3. ATORVASTATIN [Concomitant]
  4. CELEXA [Concomitant]
  5. LASIX [Concomitant]
  6. LANTUS [Concomitant]
  7. PROTONIX [Concomitant]
  8. PREDNISONE [Concomitant]
  9. CORDARONE [Concomitant]
  10. DOPAMINE DRIP [Concomitant]
  11. EPINEPHRINE [Concomitant]
     Dosage: DRUG NAME: EPINEPHRINE DRIP
  12. HYDRALAZINE HCL [Concomitant]

REACTIONS (3)
  - CARDIAC OPERATION [None]
  - IMPAIRED HEALING [None]
  - LETHARGY [None]
